FAERS Safety Report 21286360 (Version 1)
Quarter: 2022Q3

REPORT INFORMATION
  Report Type: Other
  Country: BE (occurrence: None)
  Receive Date: 20220902
  Receipt Date: 20220902
  Transmission Date: 20221027
  Serious: Yes (Other)
  Sender: FDA-Public Use
  Company Number: BE-Navinta LLC-000290

PATIENT
  Age: 39 Year
  Sex: Male

DRUGS (2)
  1. INDOMETHACIN [Suspect]
     Active Substance: INDOMETHACIN
     Indication: Central serous chorioretinopathy
     Dosage: TID
     Route: 061
  2. DORZOLAMIDE [Suspect]
     Active Substance: DORZOLAMIDE
     Indication: Central serous chorioretinopathy
     Dosage: BID
     Route: 061

REACTIONS (4)
  - Central serous chorioretinopathy [Recovered/Resolved]
  - Condition aggravated [Recovered/Resolved]
  - Metamorphopsia [Recovered/Resolved]
  - Detachment of retinal pigment epithelium [Recovered/Resolved]
